FAERS Safety Report 17360921 (Version 1)
Quarter: 2020Q1

REPORT INFORMATION
  Report Type: Spontaneous
  Country: US (occurrence: US)
  Receive Date: 20200131
  Receipt Date: 20200131
  Transmission Date: 20200409
  Serious: Yes (Hospitalization)
  Sender: FDA-Public Use
  Company Number: None

PATIENT
  Age: 66 Year
  Sex: Female

DRUGS (2)
  1. INLYTA [Suspect]
     Active Substance: AXITINIB
     Dosage: ?          OTHER FREQUENCY:EVERY 12 HOURS;?
     Route: 048
  2. INLYTA [Concomitant]
     Active Substance: AXITINIB

REACTIONS (4)
  - Fall [None]
  - Muscular weakness [None]
  - Pelvic fracture [None]
  - Blood pressure fluctuation [None]

NARRATIVE: CASE EVENT DATE: 20200130
